FAERS Safety Report 7398348-4 (Version None)
Quarter: 2011Q2

REPORT INFORMATION
  Report Type: 
  Country: None (occurrence: None)
  Receive Date: 20110406
  Receipt Date: 20110329
  Transmission Date: 20111010
  Serious: Yes (Hospitalization, Other)
  Sender: FDA-Public Use
  Company Number: US-MERCK-0806USA00338

PATIENT
  Age: 62 Year
  Sex: Female
  Weight: 74 kg

DRUGS (6)
  1. VITAMIN E [Concomitant]
     Route: 065
     Dates: end: 20080101
  2. FOSAMAX [Suspect]
     Indication: OSTEOPENIA
     Route: 048
     Dates: start: 20040601, end: 20050501
  3. FOSAMAX PLUS D [Suspect]
     Indication: OSTEOPENIA
     Route: 048
     Dates: start: 20050501, end: 20080113
  4. LIPITOR [Concomitant]
     Route: 065
  5. FOSAMAX [Suspect]
     Indication: OSTEOPOROSIS
     Route: 048
     Dates: start: 20040601, end: 20050501
  6. FOSAMAX PLUS D [Suspect]
     Indication: OSTEOPOROSIS
     Route: 048
     Dates: start: 20050501, end: 20080113

REACTIONS (32)
  - HYPERSENSITIVITY [None]
  - BLOOD CHOLESTEROL INCREASED [None]
  - DRUG INEFFECTIVE [None]
  - FEMUR FRACTURE [None]
  - PAIN IN EXTREMITY [None]
  - PYREXIA [None]
  - SINUS BRADYCARDIA [None]
  - WEIGHT INCREASED [None]
  - ANXIETY [None]
  - BONE METABOLISM DISORDER [None]
  - FORAMEN MAGNUM STENOSIS [None]
  - CHEST PAIN [None]
  - BLOOD PRESSURE INCREASED [None]
  - SUPRAVENTRICULAR EXTRASYSTOLES [None]
  - BLOOD CALCIUM DECREASED [None]
  - ARTHRITIS [None]
  - ATRIAL FIBRILLATION [None]
  - DRUG HYPERSENSITIVITY [None]
  - STRESS [None]
  - SCOLIOSIS [None]
  - VENTRICULAR EXTRASYSTOLES [None]
  - CORONARY ARTERY DISEASE [None]
  - ADVERSE DRUG REACTION [None]
  - LUNG NEOPLASM [None]
  - SPONDYLOLISTHESIS [None]
  - COLLAGEN DISORDER [None]
  - BRADYCARDIA [None]
  - PATELLOFEMORAL PAIN SYNDROME [None]
  - PALPITATIONS [None]
  - ARTHRALGIA [None]
  - HYPERTENSION [None]
  - SINUS ARREST [None]
